FAERS Safety Report 11744670 (Version 2)
Quarter: 2016Q1

REPORT INFORMATION
  Report Type: Spontaneous
  Country: DE (occurrence: DE)
  Receive Date: 20151116
  Receipt Date: 20160128
  Transmission Date: 20160525
  Serious: Yes (Disabling)
  Sender: FDA-Public Use
  Company Number: DE-TAKEDA-2015TUS016050

PATIENT
  Age: 63 Year
  Sex: Male
  Weight: 69 kg

DRUGS (6)
  1. GABRILEN [Concomitant]
     Indication: ANALGESIC THERAPY
  2. ADENURIC [Suspect]
     Active Substance: FEBUXOSTAT
     Dosage: 20 MG, UNK
     Route: 048
     Dates: start: 201505, end: 20151011
  3. ADENURIC [Suspect]
     Active Substance: FEBUXOSTAT
     Dosage: 10 MG, UNK
     Route: 048
     Dates: start: 20151012, end: 20151017
  4. DECARTIN [Concomitant]
     Indication: JOINT SWELLING
     Dosage: 20 MG, 1/WEEK
     Route: 065
     Dates: start: 20150408
  5. GABRILEN [Concomitant]
     Indication: JOINT SWELLING
     Dosage: 50 MG, UNK
     Route: 065
     Dates: start: 20150408
  6. ADENURIC [Suspect]
     Active Substance: FEBUXOSTAT
     Indication: GOUT
     Dosage: 40 MG, UNK
     Route: 048
     Dates: start: 20150402, end: 201505

REACTIONS (15)
  - Hypokinesia [Recovered/Resolved]
  - Muscular weakness [Recovered/Resolved]
  - Gout [Recovered/Resolved]
  - Myalgia [Recovered/Resolved]
  - Fatigue [Recovered/Resolved]
  - Wrong technique in product usage process [Recovered/Resolved]
  - Arthralgia [Recovered/Resolved]
  - Tendon pain [Recovered/Resolved]
  - Joint stiffness [Recovered/Resolved]
  - Somnolence [Recovered/Resolved]
  - Muscle atrophy [Recovered/Resolved]
  - Muscle tightness [Recovered/Resolved]
  - Weight decreased [Not Recovered/Not Resolved]
  - Muscle spasms [Recovered/Resolved]
  - Arthritis [Recovered/Resolved]

NARRATIVE: CASE EVENT DATE: 201504
